FAERS Safety Report 13911563 (Version 1)
Quarter: 2017Q3

REPORT INFORMATION
  Report Type: Spontaneous
  Country: US (occurrence: US)
  Receive Date: 20170828
  Receipt Date: 20170828
  Transmission Date: 20171127
  Serious: No
  Sender: FDA-Public Use
  Company Number: US-ROCHE-1142554

PATIENT
  Sex: Female

DRUGS (8)
  1. VITAMINS [Concomitant]
     Active Substance: VITAMINS
  2. IBUPROFEN. [Concomitant]
     Active Substance: IBUPROFEN
  3. SUDAFED [Concomitant]
     Active Substance: PSEUDOEPHEDRINE HYDROCHLORIDE
  4. SPIRONOLACTONE. [Concomitant]
     Active Substance: SPIRONOLACTONE
     Route: 048
  5. CHROMIUM PICOLINATE [Concomitant]
     Active Substance: CHROMIUM PICOLINATE
     Route: 065
  6. NUTROPIN AQ [Suspect]
     Active Substance: SOMATROPIN
     Indication: GROWTH HORMONE DEFICIENCY
     Dosage: 0.006 MG/KG/WEEK
     Route: 065
  7. SYNTHROID [Concomitant]
     Active Substance: LEVOTHYROXINE SODIUM
  8. PHENTERMINE. [Concomitant]
     Active Substance: PHENTERMINE
     Route: 065

REACTIONS (3)
  - Joint swelling [Unknown]
  - Fatigue [Unknown]
  - Drug ineffective [Unknown]
